FAERS Safety Report 22281806 (Version 1)
Quarter: 2023Q2

REPORT INFORMATION
  Report Type: Spontaneous
  Country: US (occurrence: US)
  Receive Date: 20230504
  Receipt Date: 20230504
  Transmission Date: 20230721
  Serious: Yes (Hospitalization, Other)
  Sender: FDA-Public Use
  Company Number: US-009507513-2305USA000921

PATIENT
  Sex: Female

DRUGS (1)
  1. KEYTRUDA [Suspect]
     Active Substance: PEMBROLIZUMAB
     Dosage: UNK

REACTIONS (4)
  - Femur resection [Recovering/Resolving]
  - Bone prosthesis insertion [Recovering/Resolving]
  - Drug hypersensitivity [Recovering/Resolving]
  - Respiratory disorder [Recovering/Resolving]
